FAERS Safety Report 17466317 (Version 1)
Quarter: 2020Q1

REPORT INFORMATION
  Report Type: Spontaneous
  Country: ES (occurrence: ES)
  Receive Date: 20200227
  Receipt Date: 20200227
  Transmission Date: 20200409
  Serious: Yes (Death, Hospitalization, Other)
  Sender: FDA-Public Use
  Company Number: ES-PCCINC-2020-PEL-000083

PATIENT

DRUGS (1)
  1. SEVOFLURANE. [Suspect]
     Active Substance: SEVOFLURANE
     Indication: OCCUPATIONAL EXPOSURE TO TOXIC AGENT
     Dosage: UNK
     Route: 055
     Dates: start: 20191014, end: 20191223

REACTIONS (5)
  - Facial asymmetry [Fatal]
  - Single umbilical artery [Fatal]
  - Polydactyly [Fatal]
  - Holoprosencephaly [Fatal]
  - Foetal exposure during pregnancy [Fatal]

NARRATIVE: CASE EVENT DATE: 20191014
